FAERS Safety Report 6103580-3 (Version None)
Quarter: 2009Q1

REPORT INFORMATION
  Report Type: 
  Country: None (occurrence: None)
  Receive Date: 20090305
  Receipt Date: 20090226
  Transmission Date: 20090719
  Serious: Yes (Hospitalization)
  Sender: FDA-Public Use
  Company Number: NL-ROCHE-617469

PATIENT
  Sex: Male
  Weight: 77 kg

DRUGS (2)
  1. METHOXY POLYETHYLENE GLYCOL-EPOETIN BETA [Suspect]
     Route: 058
     Dates: start: 20081024
  2. DOXYCYCLINE [Concomitant]
     Dates: start: 20090130

REACTIONS (1)
  - PNEUMONIA [None]
